FAERS Safety Report 7242959-3 (Version None)
Quarter: 2011Q1

REPORT INFORMATION
  Report Type: 
  Country: None (occurrence: None)
  Receive Date: 20110125
  Receipt Date: 20110124
  Transmission Date: 20110831
  Serious: Yes (Hospitalization, Other)
  Sender: FDA-Public Use
  Company Number: LB-SANOFI-AVENTIS-2011SA002650

PATIENT
  Age: 65 Year
  Sex: Male
  Weight: 60 kg

DRUGS (19)
  1. ELOXATIN [Suspect]
     Route: 042
     Dates: start: 20101201, end: 20101201
  2. 5-FU [Suspect]
     Indication: COLORECTAL CANCER
     Route: 040
     Dates: start: 20101004, end: 20101004
  3. 5-FU [Suspect]
     Route: 040
     Dates: start: 20101201, end: 20101201
  4. DIOVANE [Concomitant]
  5. CALCIUM GLUCONATE [Concomitant]
  6. ZOFRAN [Concomitant]
  7. ELOXATIN [Suspect]
     Indication: COLORECTAL CANCER
     Route: 042
     Dates: start: 20101004, end: 20101004
  8. ZANTAC [Concomitant]
  9. SOLU-MEDROL [Concomitant]
  10. MOTILIUM [Concomitant]
  11. 5-FU [Suspect]
     Route: 041
     Dates: start: 20101201, end: 20101201
  12. LEUCOVORIN [Suspect]
     Route: 042
     Dates: start: 20101201, end: 20101201
  13. TENORMIN [Concomitant]
  14. PARIET [Concomitant]
  15. ASPIRIN [Concomitant]
  16. LEUCOVORIN [Suspect]
     Indication: COLORECTAL CANCER
     Route: 042
     Dates: start: 20101004, end: 20101004
  17. MAGNESIUM SULFATE [Concomitant]
  18. 5-FU [Suspect]
     Route: 041
     Dates: start: 20101004, end: 20101004
  19. MAGNESIUM/PYRIDOXINE [Concomitant]

REACTIONS (1)
  - ANGINA PECTORIS [None]
